FAERS Safety Report 9396119 (Version 1)
Quarter: 2013Q3

REPORT INFORMATION
  Report Type: Spontaneous
  Country: IT (occurrence: IT)
  Receive Date: 20130711
  Receipt Date: 20130711
  Transmission Date: 20140515
  Serious: Yes (Hospitalization)
  Sender: FDA-Public Use
  Company Number: PHHY2013IT073833

PATIENT
  Sex: Female

DRUGS (9)
  1. VOLTAREN [Suspect]
     Indication: PAIN
     Dosage: 1 DF, QD
     Route: 048
     Dates: start: 20130425, end: 20130531
  2. METHOTREXATE [Concomitant]
     Dosage: 10 MG, UNK
     Route: 048
  3. EUTIROX [Concomitant]
     Dosage: 1 DF, UNK
     Route: 048
  4. DIDROGYL [Concomitant]
     Route: 048
  5. LANSOX [Concomitant]
     Dosage: 1 DF, UNK
     Route: 048
  6. LASIX [Concomitant]
     Dosage: 1 DF, UNK
     Route: 048
  7. FOLINA [Concomitant]
  8. DELTACORTENE [Concomitant]
     Dosage: 1 DF, UNK
     Route: 048
  9. ENAPREN [Concomitant]
     Dosage: 1 DF, UNK
     Route: 048

REACTIONS (1)
  - Chest pain [Recovering/Resolving]
